FAERS Safety Report 4880601-7 (Version None)
Quarter: 2006Q1

REPORT INFORMATION
  Report Type: 
  Country: None (occurrence: None)
  Receive Date: 20060113
  Receipt Date: 20060105
  Transmission Date: 20060701
  Serious: Yes (Hospitalization)
  Sender: FDA-Public Use
  Company Number: GB-MERCK-0601GBR00029

PATIENT
  Age: 56 Year
  Sex: Male

DRUGS (5)
  1. SIMVASTATIN [Suspect]
     Route: 048
  2. ASPIRIN [Concomitant]
     Route: 065
  3. FERROUS SULFATE [Concomitant]
     Route: 065
  4. LANSOPRAZOLE [Concomitant]
     Route: 065
  5. CEFTRIAXONE SODIUM [Concomitant]
     Route: 065

REACTIONS (3)
  - ALANINE AMINOTRANSFERASE INCREASED [None]
  - ASPARTATE AMINOTRANSFERASE INCREASED [None]
  - MYOSITIS [None]
